FAERS Safety Report 6034893-1 (Version None)
Quarter: 2009Q1

REPORT INFORMATION
  Report Type: 
  Country: None (occurrence: None)
  Receive Date: 20090108
  Receipt Date: 20090108
  Transmission Date: 20090719
  Serious: Yes (Hospitalization, Other)
  Sender: FDA-Public Use
  Company Number: None

PATIENT
  Age: 66 Year
  Sex: Female
  Weight: 68 kg

DRUGS (15)
  1. EMEND [Suspect]
     Indication: PREMEDICATION
     Dosage: 80MG PREMED FOR CHEMO PO
     Route: 048
     Dates: start: 20081215, end: 20081215
  2. ALENDRONATE SODIUM [Concomitant]
  3. ASCORBIC ACID [Concomitant]
  4. BENAZEPRIL HYDROCHLORIDE [Concomitant]
  5. BUPROPION HCL [Concomitant]
  6. CALCIUM/VITAMIN D [Concomitant]
  7. CYCLOPHOSPHAMIDE [Concomitant]
  8. FOLIC ACID [Concomitant]
  9. HEPARIN LOCK-FLUSH [Concomitant]
  10. HYDROCHLOROTHIAZIDE [Concomitant]
  11. CENTRUM MULTIVITAMIN [Concomitant]
  12. OMEPRAZOLE [Concomitant]
  13. VAGIFEM [Concomitant]
  14. SODIUM CHLORIDE [Concomitant]
  15. VITAMIN B COMPLEX/VIT C/FOLIC ACID -NEPHROCAPS- [Concomitant]

REACTIONS (3)
  - ANGIOEDEMA [None]
  - ERYTHEMA [None]
  - PRURITUS [None]
